FAERS Safety Report 13405082 (Version 1)
Quarter: 2017Q2

REPORT INFORMATION
  Report Type: Spontaneous
  Country: GB (occurrence: GB)
  Receive Date: 20170405
  Receipt Date: 20170405
  Transmission Date: 20170830
  Serious: Yes (Life-Threatening, Hospitalization)
  Sender: FDA-Public Use
  Company Number: GB-TEVA-754361ACC

PATIENT
  Age: 84 Year
  Sex: Female
  Weight: 53 kg

DRUGS (17)
  1. TRIMETHOPRIM. [Concomitant]
     Active Substance: TRIMETHOPRIM
  2. CITALOPRAM HYDROCHLORIDE [Concomitant]
     Active Substance: CITALOPRAM HYDROCHLORIDE
  3. COCODAMOL [Concomitant]
     Active Substance: ACETAMINOPHEN\CODEINE PHOSPHATE
     Dosage: 30/500
  4. FLUCLOXACILLIN [Concomitant]
     Active Substance: FLUCLOXACILLIN
  5. WARFARIN SODIUM. [Suspect]
     Active Substance: WARFARIN SODIUM
     Indication: PULMONARY EMBOLISM
     Dosage: AS PER INR
     Route: 048
     Dates: start: 20161220, end: 20161224
  6. DIHYDROCODEINE [Concomitant]
     Active Substance: DIHYDROCODEINE
  7. FUROSEMIDE. [Concomitant]
     Active Substance: FUROSEMIDE
  8. LANSOPRAZOL [Concomitant]
     Active Substance: LANSOPRAZOLE
  9. RIFAMPICIN SODIUM [Concomitant]
  10. AMLODIPINE [Concomitant]
     Active Substance: AMLODIPINE BESYLATE
  11. VANCOMYCIN HYDROCHLORIDE. [Concomitant]
     Active Substance: VANCOMYCIN HYDROCHLORIDE
  12. PERINDOPRIL [Concomitant]
     Active Substance: PERINDOPRIL
  13. PARACETAMOL [Concomitant]
     Active Substance: ACETAMINOPHEN
  14. SYMBICORT [Concomitant]
     Active Substance: BUDESONIDE\FORMOTEROL FUMARATE DIHYDRATE
     Dosage: 400/12
  15. ENOXAPARIN [Suspect]
     Active Substance: ENOXAPARIN
     Indication: PULMONARY EMBOLISM
     Dosage: 80 MILLIGRAM DAILY;
     Route: 058
     Dates: start: 20161218, end: 20161229
  16. PROMETHAZINE HYDROCHLORIDE. [Concomitant]
     Active Substance: PROMETHAZINE HYDROCHLORIDE
  17. TIOTROPIUM [Concomitant]
     Active Substance: TIOTROPIUM

REACTIONS (2)
  - Pelvic haematoma [Not Recovered/Not Resolved]
  - Abdominal pain lower [Not Recovered/Not Resolved]
